FAERS Safety Report 7908120-1 (Version None)
Quarter: 2011Q4

REPORT INFORMATION
  Report Type: 
  Country: None (occurrence: None)
  Receive Date: 20111111
  Receipt Date: 20111108
  Transmission Date: 20120403
  Serious: No
  Sender: FDA-Public Use
  Company Number: US-BIOGENIDEC-2010BI029095

PATIENT
  Sex: Female

DRUGS (1)
  1. TYSABRI [Suspect]
     Indication: MULTIPLE SCLEROSIS
     Route: 042
     Dates: start: 20100222

REACTIONS (9)
  - MUSCLE SPASMS [None]
  - HEADACHE [None]
  - ANXIETY [None]
  - PAIN IN EXTREMITY [None]
  - CONFUSIONAL STATE [None]
  - LOSS OF CONTROL OF LEGS [None]
  - FATIGUE [None]
  - DRUG EFFECT DECREASED [None]
  - GAIT DISTURBANCE [None]
